FAERS Safety Report 14279269 (Version 1)
Quarter: 2017Q4

REPORT INFORMATION
  Report Type: Spontaneous
  Country: US (occurrence: US)
  Receive Date: 20171212
  Receipt Date: 20171212
  Transmission Date: 20180321
  Serious: Yes (Hospitalization, Other)
  Sender: FDA-Public Use
  Company Number: US-MYLANLABS-2017M1077234

PATIENT
  Age: 47 Year
  Sex: Female

DRUGS (16)
  1. PARACETAMOL [Concomitant]
     Active Substance: ACETAMINOPHEN
     Indication: PRODUCT USED FOR UNKNOWN INDICATION
     Dosage: AS NEEDED
     Route: 065
  2. PREDNISONE. [Suspect]
     Active Substance: PREDNISONE
     Dosage: 10MG X 5DAYS, LATER TAPERED TO 10MG EVERY OTHER DAY FOR 5 DAYS
     Route: 048
  3. SULPHAMETHOXAZOLE/TRIMETHOPRIM [Suspect]
     Active Substance: SULFAMETHOXAZOLE\TRIMETHOPRIM
     Indication: URINARY TRACT INFECTION
     Dosage: 800MG/160MG (TRIMETHOPRIM/SULFAMETHOXAZOLE) TWICE DAILY
     Route: 048
  4. IBUPROFEN. [Concomitant]
     Active Substance: IBUPROFEN
     Indication: PRODUCT USED FOR UNKNOWN INDICATION
     Dosage: AS NEEDED
     Route: 065
  5. PREDNISONE. [Suspect]
     Active Substance: PREDNISONE
     Dosage: 20MG ALTERNATING WITH 10MG EVERY OTHER DAY, LATER TAPERED TO 10MG DAILY
     Route: 048
  6. CIPROFLOXACIN. [Concomitant]
     Active Substance: CIPROFLOXACIN
     Indication: PRODUCT USED FOR UNKNOWN INDICATION
     Route: 048
  7. FOLIC ACID. [Concomitant]
     Active Substance: FOLIC ACID
     Indication: HAEMOLYTIC ANAEMIA
     Route: 048
  8. PREDNISONE. [Suspect]
     Active Substance: PREDNISONE
     Indication: HAEMOLYTIC ANAEMIA
     Dosage: 60MG DAILY; LATER TAPERED TO 40MG DAILY
     Route: 048
  9. PREDNISONE. [Suspect]
     Active Substance: PREDNISONE
     Dosage: 10MG DAILY, LATER TAPERED TO 10MG X 5DAYS
     Route: 048
  10. PREDNISONE. [Suspect]
     Active Substance: PREDNISONE
     Dosage: 10MG EVERY OTHER DAY FOR 5 DAYS, LATER DISCONTINUED
     Route: 048
  11. PREDNISONE. [Suspect]
     Active Substance: PREDNISONE
     Dosage: 40MG DAILY; LATER TAPERED TO 20MG DAILY
     Route: 048
  12. PREDNISONE. [Suspect]
     Active Substance: PREDNISONE
     Dosage: 20MG DAILY; LATER TAPERED TO 20MG ALTERNATING WITH 10MG EVERY OTHER DAY
     Route: 048
  13. INSULIN GLARGINE [Concomitant]
     Active Substance: INSULIN GLARGINE
     Indication: TYPE 1 DIABETES MELLITUS
     Route: 065
  14. METHYLPREDNISOLONE. [Concomitant]
     Active Substance: METHYLPREDNISOLONE
     Indication: HAEMOLYTIC ANAEMIA
     Dosage: 60 MG
     Route: 042
  15. INSULIN LISPRO [Concomitant]
     Active Substance: INSULIN LISPRO
     Indication: TYPE 1 DIABETES MELLITUS
     Route: 065
  16. PANTOPRAZOLE [Concomitant]
     Active Substance: PANTOPRAZOLE
     Indication: PRODUCT USED FOR UNKNOWN INDICATION
     Dosage: 40MG DAILY
     Route: 048

REACTIONS (4)
  - Haemolytic anaemia [Recovering/Resolving]
  - Abdominal pain upper [Unknown]
  - Withdrawal syndrome [Unknown]
  - Depressed mood [Unknown]
